FAERS Safety Report 11029038 (Version 7)
Quarter: 2018Q3

REPORT INFORMATION
  Report Type: Spontaneous
  Country: US (occurrence: US)
  Receive Date: 20150414
  Receipt Date: 20180704
  Transmission Date: 20181010
  Serious: Yes (Hospitalization)
  Sender: FDA-Public Use
  Company Number: US-ASTRAZENECA-2014SE63277

PATIENT
  Age: 722 Month
  Sex: Female
  Weight: 89.4 kg

DRUGS (37)
  1. SYMLINPEN [Interacting]
     Active Substance: PRAMLINTIDE ACETATE
     Indication: TYPE 2 DIABETES MELLITUS
     Route: 058
     Dates: start: 201002, end: 201003
  2. ACARBOSE. [Interacting]
     Active Substance: ACARBOSE
     Route: 065
  3. AMLODIPINE [Concomitant]
     Active Substance: AMLODIPINE BESYLATE
     Indication: HYPERTENSION
     Dates: start: 1997
  4. SYMLINPEN [Interacting]
     Active Substance: PRAMLINTIDE ACETATE
     Indication: TYPE 2 DIABETES MELLITUS
     Route: 058
     Dates: end: 201201
  5. ALVESCO [Concomitant]
     Active Substance: CICLESONIDE
  6. POTASSIUM [Concomitant]
     Active Substance: POTASSIUM
     Indication: HYPOKALAEMIA
  7. VITAMIN C [Concomitant]
     Active Substance: ASCORBIC ACID
     Indication: ASTHENIA
  8. SYMLINPEN [Suspect]
     Active Substance: PRAMLINTIDE ACETATE
     Indication: TYPE 2 DIABETES MELLITUS
     Route: 058
  9. NORVASC [Concomitant]
     Active Substance: AMLODIPINE BESYLATE
  10. SYMLINPEN [Interacting]
     Active Substance: PRAMLINTIDE ACETATE
     Indication: TYPE 2 DIABETES MELLITUS
     Route: 058
     Dates: start: 201001
  11. SYMLINPEN [Interacting]
     Active Substance: PRAMLINTIDE ACETATE
     Indication: TYPE 2 DIABETES MELLITUS
     Route: 058
     Dates: start: 201004, end: 201005
  12. LANTUS [Concomitant]
     Active Substance: INSULIN GLARGINE
     Indication: TYPE 2 DIABETES MELLITUS
     Dosage: 10 UNITS, AT NIGHT
     Route: 058
  13. FOLIC ACID. [Concomitant]
     Active Substance: FOLIC ACID
     Indication: DIABETES MELLITUS
  14. VITAMIN B12 [Concomitant]
     Active Substance: CYANOCOBALAMIN
     Indication: ASTHENIA
  15. FLONASE [Concomitant]
     Active Substance: FLUTICASONE PROPIONATE
     Indication: HYPERSENSITIVITY
     Dosage: TWO TIMES A DAY
     Route: 045
  16. SYMLINPEN [Interacting]
     Active Substance: PRAMLINTIDE ACETATE
     Indication: TYPE 2 DIABETES MELLITUS
     Route: 058
     Dates: start: 200912
  17. SYMLINPEN [Interacting]
     Active Substance: PRAMLINTIDE ACETATE
     Indication: TYPE 2 DIABETES MELLITUS
     Route: 058
     Dates: start: 201005
  18. SYMLINPEN [Interacting]
     Active Substance: PRAMLINTIDE ACETATE
     Indication: TYPE 2 DIABETES MELLITUS
     Dosage: 60 MCG TWO TIMES A DAY
     Route: 058
     Dates: start: 201203
  19. SYMLINPEN [Interacting]
     Active Substance: PRAMLINTIDE ACETATE
     Indication: TYPE 2 DIABETES MELLITUS
     Dosage: 120 THREE TIMES A DAY
     Route: 058
  20. HUMALOG [Concomitant]
     Active Substance: INSULIN LISPRO
     Indication: TYPE 2 DIABETES MELLITUS
     Dosage: 14 UNITS, BID
     Route: 058
  21. POTASSIUM [Concomitant]
     Active Substance: POTASSIUM
     Indication: HYPOKALAEMIA
  22. B6 [Concomitant]
     Active Substance: PYRIDOXINE HYDROCHLORIDE
     Indication: ASTHENIA
  23. FOLIC ACID. [Concomitant]
     Active Substance: FOLIC ACID
     Indication: DIABETES MELLITUS
  24. SYMLINPEN [Interacting]
     Active Substance: PRAMLINTIDE ACETATE
     Indication: TYPE 2 DIABETES MELLITUS
     Dosage: 1 MG/2.7 ML 2 PEN PACK; 2.7 ML TWO TIMES A DAY
     Route: 058
     Dates: start: 2009
  25. SYMLINPEN [Interacting]
     Active Substance: PRAMLINTIDE ACETATE
     Indication: TYPE 2 DIABETES MELLITUS
     Route: 058
     Dates: start: 201203
  26. EPHEDRA [Interacting]
     Active Substance: EPHEDRA
     Route: 065
  27. LANTUS [Concomitant]
     Active Substance: INSULIN GLARGINE
     Indication: TYPE 2 DIABETES MELLITUS
     Dosage: 20 UNITS, BID
     Route: 058
  28. AMLODIPINE [Concomitant]
     Active Substance: AMLODIPINE BESYLATE
     Dates: start: 1997
  29. APIDRA [Concomitant]
     Active Substance: INSULIN GLULISINE
  30. SYMLINPEN [Interacting]
     Active Substance: PRAMLINTIDE ACETATE
     Indication: TYPE 2 DIABETES MELLITUS
     Route: 058
     Dates: start: 201003, end: 201004
  31. ZYRTEC [Concomitant]
     Active Substance: CETIRIZINE HYDROCHLORIDE
     Indication: HYPERSENSITIVITY
  32. SYMLINPEN [Interacting]
     Active Substance: PRAMLINTIDE ACETATE
     Indication: TYPE 2 DIABETES MELLITUS
     Route: 058
     Dates: start: 200901
  33. HUMALOG [Concomitant]
     Active Substance: INSULIN LISPRO
     Indication: TYPE 2 DIABETES MELLITUS
     Dosage: 7?9 UNITS VASE ON SLIDING SCLAE INSULIN, TID, DECREASD TO 5 UNITS, TID, UPON RESTARTING SYMLIN
     Route: 058
  34. ALLEGRA [Concomitant]
     Active Substance: FEXOFENADINE HYDROCHLORIDE
  35. IRON [Concomitant]
     Active Substance: IRON
     Indication: ANAEMIA
     Dosage: 2 TABLETS IN THE MORNING AND 2 TABLETS AT NIGHT
  36. ZETIA [Concomitant]
     Active Substance: EZETIMIBE
     Indication: BLOOD TRIGLYCERIDES ABNORMAL
  37. LEVALBUTEROL. [Concomitant]
     Active Substance: LEVALBUTEROL
     Indication: THROAT TIGHTNESS
     Dosage: 0.1% AS REQUIRED

REACTIONS (36)
  - Asthma [Unknown]
  - Urticaria [Recovered/Resolved]
  - Drug dose omission [Unknown]
  - Expired product administered [Unknown]
  - Hypertension [Unknown]
  - Fatigue [Not Recovered/Not Resolved]
  - Hyperglycaemia [Unknown]
  - Feeling abnormal [Recovered/Resolved]
  - Hepatic enzyme increased [Unknown]
  - Nausea [Recovered/Resolved]
  - Visual impairment [Unknown]
  - Pruritus [Unknown]
  - Product quality issue [Unknown]
  - Dyspnoea [Unknown]
  - Diarrhoea [Recovered/Resolved]
  - Drug interaction [Unknown]
  - Swelling [Unknown]
  - Weight decreased [Unknown]
  - Tremor [Unknown]
  - Chest discomfort [Unknown]
  - Weight increased [Unknown]
  - Flatulence [Not Recovered/Not Resolved]
  - Abdominal pain upper [Not Recovered/Not Resolved]
  - Blood glucose decreased [Recovered/Resolved]
  - Blood glucose increased [Recovered/Resolved]
  - Pain [Unknown]
  - Body height decreased [Unknown]
  - Osteoarthritis [Unknown]
  - Blood potassium decreased [Unknown]
  - Anaemia [Unknown]
  - Hypersensitivity [Unknown]
  - Seasonal allergy [Unknown]
  - Sneezing [Unknown]
  - Hypoglycaemia [Recovered/Resolved]
  - Serum ferritin decreased [Unknown]
  - Erythema [Unknown]

NARRATIVE: CASE EVENT DATE: 200901
